FAERS Safety Report 5925912-9 (Version None)
Quarter: 2008Q4

REPORT INFORMATION
  Report Type: 
  Country: None (occurrence: None)
  Receive Date: 20081021
  Receipt Date: 20081013
  Transmission Date: 20090506
  Serious: Yes (Other)
  Sender: FDA-Public Use
  Company Number: AU-PFIZER INC-2008086530

PATIENT
  Sex: Female

DRUGS (3)
  1. LIPITOR [Suspect]
     Dosage: DAILY DOSE:20MG
     Dates: end: 20081009
  2. CALCITRIOL [Concomitant]
  3. GLUCOSAMINE [Concomitant]

REACTIONS (4)
  - CEREBROVASCULAR ACCIDENT [None]
  - CONSTIPATION [None]
  - FATIGUE [None]
  - MYALGIA [None]
